FAERS Safety Report 5016626-0 (Version None)
Quarter: 2006Q2

REPORT INFORMATION
  Report Type: 
  Country: None (occurrence: None)
  Receive Date: 20060417
  Receipt Date: 20060208
  Transmission Date: 20061013
  Serious: Yes (Other)
  Sender: FDA-Public Use
  Company Number: 144465USA

PATIENT
  Age: 43 Year
  Sex: Female

DRUGS (1)
  1. MINOCYCLINE HCL [Suspect]
     Indication: ACNE
     Dosage: 200 MILLIGRAM DAILY ORAL
     Route: 048
     Dates: start: 20060101, end: 20060124

REACTIONS (2)
  - DEAFNESS [None]
  - TINNITUS [None]
